FAERS Safety Report 4867032-0 (Version None)
Quarter: 2005Q4

REPORT INFORMATION
  Report Type: 
  Country: None (occurrence: None)
  Receive Date: 20051220
  Receipt Date: 20020310
  Transmission Date: 20060501
  Serious: Yes (Death, Hospitalization)
  Sender: FDA-Public Use
  Company Number: HQ0774728JAN2000

PATIENT
  Age: 44 Year
  Sex: Female

DRUGS (2)
  1. GEMTUZUMAB OZOGAMICIN [Suspect]
     Indication: ACUTE MYELOID LEUKAEMIA
     Dosage: 9 MG/M^ 1X PER 1 DOS INTRAVENOUS
     Route: 042
     Dates: start: 19991221, end: 19991221
  2. GEMTUZUMAB OZOGAMICIN [Suspect]
     Indication: ACUTE MYELOID LEUKAEMIA
     Dosage: 9 MG/M^ 1X PER 1 DOS INTRAVENOUS
     Route: 042
     Dates: start: 20000104, end: 20000104

REACTIONS (15)
  - ACUTE RESPIRATORY FAILURE [None]
  - BONE MARROW FAILURE [None]
  - CEREBRAL HAEMORRHAGE [None]
  - EPISTAXIS [None]
  - HAEMORRHAGE [None]
  - HAEMORRHAGE INTRACRANIAL [None]
  - HERPES SIMPLEX [None]
  - MOUTH HAEMORRHAGE [None]
  - PETECHIAE [None]
  - PNEUMONIA [None]
  - PUNCTURE SITE HAEMORRHAGE [None]
  - SEPSIS [None]
  - SEPTIC SHOCK [None]
  - THERAPY NON-RESPONDER [None]
  - THROMBOCYTOPENIA [None]
